FAERS Safety Report 4485300-1 (Version None)
Quarter: 2004Q4

REPORT INFORMATION
  Report Type: 
  Country: None (occurrence: None)
  Receive Date: 20041022
  Receipt Date: 20041022
  Transmission Date: 20050328
  Serious: Yes (Hospitalization)
  Sender: FDA-Public Use
  Company Number: None

PATIENT
  Age: 84 Year
  Sex: Female
  Weight: 53.5244 kg

DRUGS (4)
  1. OFLOXACIN [Suspect]
     Indication: URINARY TRACT INFECTION
     Dosage: ONE TWICE DAILY ORAL
     Route: 048
     Dates: start: 20041019, end: 20041019
  2. LOTREL [Concomitant]
  3. CATAPHRES [Concomitant]
  4. XANAX [Concomitant]

REACTIONS (10)
  - ASTHENIA [None]
  - DIZZINESS [None]
  - DRY MOUTH [None]
  - HALLUCINATION [None]
  - HALLUCINATION, VISUAL [None]
  - HEADACHE [None]
  - INSOMNIA [None]
  - MUSCULOSKELETAL DISCOMFORT [None]
  - PALPITATIONS [None]
  - TREMOR [None]
